FAERS Safety Report 22035886 (Version 4)
Quarter: 2023Q2

REPORT INFORMATION
  Report Type: Report from Study
  Country: CA (occurrence: CA)
  Receive Date: 20230224
  Receipt Date: 20230428
  Transmission Date: 20230721
  Serious: Yes (Other)
  Sender: FDA-Public Use
  Company Number: CA-BAUSCH-BL-2023-002962

PATIENT
  Age: 80 Year
  Sex: Female

DRUGS (3)
  1. SILIQ [Suspect]
     Active Substance: BRODALUMAB
     Indication: Psoriasis
     Dosage: 210/1.5 MG, WEEK 0: 08-FEB-2023, WEEK 1: 15-FEB-2023, WEEK 1: 22/FEB/2023, INDUCTION WEEKLY
     Route: 058
     Dates: start: 20230208, end: 20230222
  2. SILIQ [Suspect]
     Active Substance: BRODALUMAB
     Dosage: 210/1.5 MG, Q2 WEEKS
     Route: 058
     Dates: start: 202302, end: 2023
  3. SILIQ [Suspect]
     Active Substance: BRODALUMAB
     Dosage: 210/1.5 MG, Q2 WEEKS
     Route: 058
     Dates: start: 2023

REACTIONS (7)
  - Vision blurred [Recovered/Resolved]
  - Headache [Recovered/Resolved]
  - Hypoaesthesia [Recovered/Resolved]
  - Sensory loss [Recovered/Resolved]
  - Migraine [Not Recovered/Not Resolved]
  - Psoriasis [Recovering/Resolving]
  - Diarrhoea [Recovered/Resolved]

NARRATIVE: CASE EVENT DATE: 20230101
